FAERS Safety Report 21242297 (Version 2)
Quarter: 2022Q3

REPORT INFORMATION
  Report Type: Spontaneous
  Country: US (occurrence: US)
  Receive Date: 20220823
  Receipt Date: 20220831
  Transmission Date: 20221026
  Serious: Yes (Hospitalization, Other)
  Sender: FDA-Public Use
  Company Number: US-ORGANON-O2208USA001597

PATIENT
  Age: 26 Year
  Sex: Female
  Weight: 64.49 kg

DRUGS (4)
  1. NEXPLANON [Suspect]
     Active Substance: ETONOGESTREL
     Indication: Contraception
     Dosage: ONE EVERY THREE YEARS
     Route: 059
     Dates: start: 20200501, end: 20220823
  2. KEFLEX [Concomitant]
     Active Substance: CEPHALEXIN
     Dosage: UNK
  3. FLUCONAZOLE [Concomitant]
     Active Substance: FLUCONAZOLE
     Dosage: 1 TABLET EVERY 72 HOURS BY ORAL ROUTE
     Route: 048
  4. NAPROXEN [Concomitant]
     Active Substance: NAPROXEN
     Dosage: 1 TABLET TWICE A DAY BY ORAL ROUTE AS NEEDED FOR 14 DAYS
     Route: 048

REACTIONS (14)
  - Ectopic pregnancy with contraceptive device [Recovered/Resolved]
  - Ovarian cyst [Unknown]
  - Unintended pregnancy [Recovered/Resolved]
  - Smear cervix abnormal [Unknown]
  - Loop electrosurgical excision procedure [Unknown]
  - Dysmenorrhoea [Recovering/Resolving]
  - Menstruation irregular [Unknown]
  - Somnolence [Unknown]
  - Hypomenorrhoea [Unknown]
  - Nervousness [Recovered/Resolved]
  - Anxiety [Recovered/Resolved]
  - Menstrual disorder [Unknown]
  - Stress [Unknown]
  - Product quality issue [Unknown]

NARRATIVE: CASE EVENT DATE: 20201129
